FAERS Safety Report 8543020-8 (Version None)
Quarter: 2012Q3

REPORT INFORMATION
  Report Type: 
  Country: None (occurrence: None)
  Receive Date: 20120727
  Receipt Date: 20120717
  Transmission Date: 20120928
  Serious: Yes (Other)
  Sender: FDA-Public Use
  Company Number: US-JNJFOC-20120708552

PATIENT
  Sex: Male
  Weight: 83.92 kg

DRUGS (4)
  1. OXYCONTIN [Concomitant]
     Indication: PAIN
     Route: 048
     Dates: start: 20110101
  2. OXYCONTIN [Concomitant]
     Indication: SPONDYLITIS
     Route: 048
     Dates: start: 20110101
  3. REMICADE [Suspect]
     Indication: ANKYLOSING SPONDYLITIS
     Route: 042
     Dates: start: 20110401, end: 20120301
  4. REMICADE [Suspect]
     Indication: CROHN'S DISEASE
     Route: 042
     Dates: start: 20110401, end: 20120301

REACTIONS (5)
  - VITAMIN D DEFICIENCY [None]
  - VITAMIN B COMPLEX DEFICIENCY [None]
  - CROHN'S DISEASE [None]
  - DRUG INEFFECTIVE [None]
  - ANKYLOSING SPONDYLITIS [None]
